FAERS Safety Report 13404169 (Version 1)
Quarter: 2017Q2

REPORT INFORMATION
  Report Type: Spontaneous
  Country: US (occurrence: US)
  Receive Date: 20170405
  Receipt Date: 20170405
  Transmission Date: 20170830
  Serious: Yes (Other)
  Sender: FDA-Public Use
  Company Number: None

PATIENT
  Age: 38 Year
  Sex: Female
  Weight: 81 kg

DRUGS (1)
  1. LYRICA [Suspect]
     Active Substance: PREGABALIN
     Indication: CARPAL TUNNEL SYNDROME
     Dosage: ?          QUANTITY:1 CAPSULE(S);?
     Route: 048
     Dates: start: 20150801, end: 20160913

REACTIONS (10)
  - Withdrawal syndrome [None]
  - Eating disorder [None]
  - Arrhythmia [None]
  - Insomnia [None]
  - Hypertension [None]
  - Paraesthesia [None]
  - Restless legs syndrome [None]
  - Panic attack [None]
  - Pruritus generalised [None]
  - Influenza like illness [None]

NARRATIVE: CASE EVENT DATE: 20160914
